FAERS Safety Report 10434138 (Version 1)
Quarter: 2014Q3

REPORT INFORMATION
  Report Type: Spontaneous
  Country: FR (occurrence: FR)
  Receive Date: 20140905
  Receipt Date: 20140905
  Transmission Date: 20150326
  Serious: Yes (Hospitalization)
  Sender: FDA-Public Use
  Company Number: FR-PFIZER INC-2014244213

PATIENT
  Age: 94 Year
  Sex: Male

DRUGS (7)
  1. ZOLOFT [Suspect]
     Active Substance: SERTRALINE HYDROCHLORIDE
     Dosage: 75 MG, DAILY
     Route: 048
     Dates: start: 201407, end: 201407
  2. KARDEGIC [Concomitant]
     Active Substance: ASPIRIN LYSINE
     Dosage: 1 SACHET OF 160 MG, 1X/DAY
     Route: 048
  3. ZOLOFT [Suspect]
     Active Substance: SERTRALINE HYDROCHLORIDE
     Indication: ABNORMAL BEHAVIOUR
     Dosage: 50 MG, 1X/DAY
     Route: 048
  4. SERESTA [Concomitant]
     Active Substance: OXAZEPAM
     Dosage: 1 TABLET OF 10 MG, 2X/DAY
     Route: 048
  5. FORLAX [Concomitant]
     Active Substance: POLYETHYLENE GLYCOL 4000
     Dosage: 2 SACHETS OF 4 G, 1X/DAY
     Route: 048
  6. IMOVANE [Concomitant]
     Active Substance: ZOPICLONE
     Dosage: 0.5 TABLET OF 7.5 MG, 1X/DAY
     Route: 048
  7. ZOLOFT [Suspect]
     Active Substance: SERTRALINE HYDROCHLORIDE
     Dosage: 25 MG, 1X/DAY
     Route: 048
     Dates: start: 201407, end: 20140726

REACTIONS (3)
  - Psychomotor skills impaired [Recovered/Resolved]
  - Asthenia [Recovered/Resolved]
  - Bradycardia [Recovered/Resolved]

NARRATIVE: CASE EVENT DATE: 20140724
